FAERS Safety Report 19515336 (Version 4)
Quarter: 2021Q3

REPORT INFORMATION
  Report Type: Report from Study
  Country: US (occurrence: US)
  Receive Date: 20210709
  Receipt Date: 20210809
  Transmission Date: 20211014
  Serious: Yes (Hospitalization)
  Sender: FDA-Public Use
  Company Number: US-BAUSCH-BL-2021-023187

PATIENT
  Age: 56 Year
  Sex: Female

DRUGS (1)
  1. SILIQ [Suspect]
     Active Substance: BRODALUMAB
     Indication: PSORIASIS
     Dosage: 0,1,2 WEEK, 210MG/1.5ML SOSY
     Route: 058
     Dates: start: 201904

REACTIONS (2)
  - Headache [Not Recovered/Not Resolved]
  - Hallucination, auditory [Unknown]
